FAERS Safety Report 4460238-4 (Version None)
Quarter: 2004Q3

REPORT INFORMATION
  Report Type: 
  Country: None (occurrence: None)
  Receive Date: 20040928
  Receipt Date: 20040210
  Transmission Date: 20050211
  Serious: No
  Sender: FDA-Public Use
  Company Number: US-GLAXOSMITHKLINE-A0497745A

PATIENT
  Age: 68 Year
  Sex: Female

DRUGS (4)
  1. SEREVENT [Suspect]
     Indication: ASTHMA
     Route: 055
     Dates: start: 20010101, end: 20010101
  2. SYNTHROID [Concomitant]
  3. PRILOSEC [Concomitant]
  4. BLOOD PRESSURE MEDICATION [Concomitant]

REACTIONS (4)
  - CHOKING SENSATION [None]
  - HOARSENESS [None]
  - PHARYNGOLARYNGEAL PAIN [None]
  - PRODUCTIVE COUGH [None]
